FAERS Safety Report 8459093-7 (Version None)
Quarter: 2012Q2

REPORT INFORMATION
  Report Type: 
  Country: None (occurrence: None)
  Receive Date: 20120622
  Receipt Date: 20120612
  Transmission Date: 20120825
  Serious: Yes (Hospitalization)
  Sender: FDA-Public Use
  Company Number: BR-PFIZER INC-BR-WYE-H13732010

PATIENT
  Age: 68 Year
  Sex: Female
  Weight: 76 kg

DRUGS (4)
  1. BEVACIZUMAB [Suspect]
     Indication: RENAL CELL CARCINOMA
     Dosage: 10 MG/KG, ONCE EVERY 2 WEEKS
     Route: 042
     Dates: start: 20091223
  2. TEMSIROLIMUS [Suspect]
     Indication: RENAL CELL CARCINOMA
     Dosage: 25 MG, ONCE EVERY OTHER WEEK
     Route: 042
     Dates: start: 20091223, end: 20100217
  3. BEVACIZUMAB [Suspect]
     Dosage: 10 MG/KG, ONCE EVERY 2 WEEKS
     Route: 042
     Dates: end: 20100217
  4. BEVACIZUMAB [Suspect]
     Dosage: 10 MG/KG, ONCE EVERY 2 WEEKS
     Route: 042

REACTIONS (2)
  - TYPE 2 DIABETES MELLITUS [None]
  - HYPERGLYCAEMIA [None]
